FAERS Safety Report 21174262 (Version 1)
Quarter: 2022Q3

REPORT INFORMATION
  Report Type: Report from Study
  Country: US (occurrence: US)
  Receive Date: 20220804
  Receipt Date: 20220804
  Transmission Date: 20221027
  Serious: Yes (Other)
  Sender: FDA-Public Use
  Company Number: US-JAZZ-2022-US-023997

PATIENT
  Sex: Female

DRUGS (12)
  1. XYREM [Suspect]
     Active Substance: SODIUM OXYBATE
     Indication: Narcolepsy
     Dosage: 4.5 GRAM, BID
     Route: 048
  2. XYREM [Suspect]
     Active Substance: SODIUM OXYBATE
     Indication: Cataplexy
     Dosage: 3.5 GRAM
     Route: 048
  3. ISOTRETINOIN [Concomitant]
     Active Substance: ISOTRETINOIN
     Dosage: UNK
     Dates: start: 20201130
  4. ATOMOXETINE HYDROCHLORIDE [Concomitant]
     Active Substance: ATOMOXETINE HYDROCHLORIDE
     Dosage: TAKE 1 CAPSULE BY MOUTH EVERY DAY
     Dates: start: 20220208
  5. BUPROPION HCL SANDOZ RETARD [Concomitant]
     Dosage: TAKE 1 TABLET BU MOUTH EVERU MORNING
  6. OMEPRAZOLE [Concomitant]
     Active Substance: OMEPRAZOLE
     Dosage: TAKE ONE CAPSULE BY MOUTH DAILY
  7. PREVIDENT [Concomitant]
     Active Substance: SODIUM FLUORIDE
     Dosage: USE IN PLACE OF REGULAR TOOTH PSATE DAILY
     Dates: start: 20211122
  8. PROGESTERONE [Concomitant]
     Active Substance: PROGESTERONE
     Dosage: TAKE 1 CAPSULE BY MOUTH EVRY NIGHT
  9. PROPRANOLOL [Concomitant]
     Active Substance: PROPRANOLOL HYDROCHLORIDE
     Dosage: TAKE 1 TAB TWICE FOR ANXIETY
  10. SODIUM FLUORIDE [Concomitant]
     Active Substance: SODIUM FLUORIDE
     Dosage: USE ONCE DAILY IN PLACE OF REGULAR TOOTHPASTE
  11. SPIRONOLACTONE [Concomitant]
     Active Substance: SPIRONOLACTONE
     Dosage: TAKE 1 TABLET BY MOUTH EVERY DAY
  12. WAKIX [Concomitant]
     Active Substance: PITOLISANT HYDROCHLORIDE
     Dosage: 2 TABS FOR HYPERSOMNIA/CATAPLEXY DUE TO NARCOLEPSY
     Dates: start: 20220602

REACTIONS (1)
  - Hypoventilation [Unknown]
